FAERS Safety Report 4832900-2 (Version None)
Quarter: 2005Q4

REPORT INFORMATION
  Report Type: 
  Country: None (occurrence: None)
  Receive Date: 20051121
  Receipt Date: 20051117
  Transmission Date: 20060501
  Serious: Yes (Other)
  Sender: FDA-Public Use
  Company Number: AU-GLAXOSMITHKLINE-B0401027A

PATIENT
  Age: 76 Year
  Sex: Male

DRUGS (1)
  1. DILATREND [Suspect]
     Indication: DRUG USE FOR UNKNOWN INDICATION
     Dates: start: 20050506

REACTIONS (1)
  - PSORIASIS [None]
